FAERS Safety Report 7391218-7 (Version None)
Quarter: 2011Q2

REPORT INFORMATION
  Report Type: 
  Country: None (occurrence: None)
  Receive Date: 20110404
  Receipt Date: 20100629
  Transmission Date: 20111010
  Serious: No
  Sender: FDA-Public Use
  Company Number: US-PFIZER INC-2010081670

PATIENT
  Sex: Female

DRUGS (2)
  1. ZOLOFT [Suspect]
  2. REMERON [Suspect]

REACTIONS (1)
  - SEXUAL DYSFUNCTION [None]
